FAERS Safety Report 4391413-5 (Version None)
Quarter: 2004Q3

REPORT INFORMATION
  Report Type: 
  Country: None (occurrence: None)
  Receive Date: 20040707
  Receipt Date: 20040625
  Transmission Date: 20050211
  Serious: Yes (Other)
  Sender: FDA-Public Use
  Company Number: US-GLAXOSMITHKLINE-A0516119A

PATIENT
  Age: 49 Year
  Sex: Female

DRUGS (8)
  1. PAXIL CR [Suspect]
     Indication: DEPRESSION
     Dosage: 75MG PER DAY
     Route: 048
     Dates: start: 20040201, end: 20040610
  2. ATIVAN [Suspect]
  3. DILANTIN [Concomitant]
  4. LEVOXYL [Concomitant]
  5. DIOVAN [Concomitant]
  6. KLONOPIN [Concomitant]
  7. SEROQUEL [Concomitant]
  8. ATIVAN [Concomitant]

REACTIONS (11)
  - AGITATION [None]
  - ANGER [None]
  - DEPRESSION [None]
  - DRUG INEFFECTIVE [None]
  - DRUG WITHDRAWAL SYNDROME [None]
  - FEELING HOT AND COLD [None]
  - HYPERHIDROSIS [None]
  - INSOMNIA [None]
  - INTENTIONAL OVERDOSE [None]
  - SOMNOLENCE [None]
  - SUICIDAL IDEATION [None]
